FAERS Safety Report 9402410 (Version 1)
Quarter: 2013Q3

REPORT INFORMATION
  Report Type: Spontaneous
  Country: IT (occurrence: IT)
  Receive Date: 20130716
  Receipt Date: 20130716
  Transmission Date: 20140515
  Serious: Yes (Other)
  Sender: FDA-Public Use
  Company Number: IT-ELI_LILLY_AND_COMPANY-IT201307003689

PATIENT
  Sex: Female

DRUGS (1)
  1. ZYPREXA [Suspect]
     Dosage: UNK
     Dates: start: 1993

REACTIONS (4)
  - Physical assault [Unknown]
  - Suicide attempt [Unknown]
  - Aggression [Unknown]
  - Off label use [Unknown]
